FAERS Safety Report 9252385 (Version 2)
Quarter: 2013Q2

REPORT INFORMATION
  Report Type: Spontaneous
  Country: IT (occurrence: IT)
  Receive Date: 20130424
  Receipt Date: 20130513
  Transmission Date: 20140414
  Serious: Yes (Hospitalization, Other)
  Sender: FDA-Public Use
  Company Number: IT-JNJFOC-20130408837

PATIENT
  Age: 80 Year
  Sex: Female
  Weight: 55 kg

DRUGS (15)
  1. REMICADE [Suspect]
     Indication: RHEUMATOID ARTHRITIS
     Route: 042
     Dates: start: 20130213
  2. REMICADE [Suspect]
     Indication: RHEUMATOID ARTHRITIS
     Route: 042
     Dates: start: 20120307, end: 20121219
  3. REMICADE [Suspect]
     Indication: RHEUMATOID ARTHRITIS
     Dosage: 3 MG/KG CYCLIC
     Route: 042
     Dates: start: 20110428, end: 20120111
  4. METHOTREXATE [Suspect]
     Indication: RHEUMATOID ARTHRITIS
     Route: 030
     Dates: start: 20091214
  5. METHOTREXATE [Suspect]
     Indication: RHEUMATOID ARTHRITIS
     Dosage: 15MG/2ML
     Route: 030
     Dates: start: 20060322, end: 20090806
  6. METHOTREXATE [Suspect]
     Indication: RHEUMATOID ARTHRITIS
     Dosage: 10MG/1.33ML
     Route: 030
     Dates: start: 20090706, end: 20091213
  7. GABAPENTIN [Concomitant]
     Indication: POLYNEUROPATHY
     Route: 048
     Dates: start: 20120627
  8. MIRTAZAPINE [Concomitant]
     Indication: DEPRESSION
     Route: 048
     Dates: start: 20110906
  9. CO-EFFERALGAN [Concomitant]
     Indication: ANALGESIC THERAPY
     Dosage: PARACETAMOL/CODEINE PHOSPHATE OF 500 MG/30 MG EFFERVESCENT TABLET, 3 DOSE (UNIT)
     Route: 048
     Dates: start: 20120829
  10. ACTONEL [Concomitant]
     Route: 048
     Dates: start: 20091214
  11. LUCEN [Concomitant]
     Indication: PROPHYLAXIS AGAINST GASTROINTESTINAL ULCER
     Route: 048
     Dates: start: 20090101
  12. FOLINA [Concomitant]
     Indication: ANAEMIA PROPHYLAXIS
     Route: 048
     Dates: start: 20070101
  13. EUROCAL D3 [Concomitant]
     Route: 048
     Dates: start: 20090101
  14. DELTACORTENE [Concomitant]
     Indication: RHEUMATOID ARTHRITIS
     Route: 065
  15. DELTACORTENE [Concomitant]
     Indication: RHEUMATOID ARTHRITIS
     Route: 065
     Dates: start: 200904, end: 200909

REACTIONS (1)
  - Superficial spreading melanoma stage IV [Recovered/Resolved with Sequelae]
